FAERS Safety Report 15653776 (Version 1)
Quarter: 2018Q4

REPORT INFORMATION
  Report Type: Spontaneous
  Country: US (occurrence: US)
  Receive Date: 20181123
  Receipt Date: 20181123
  Transmission Date: 20190205
  Serious: Yes (Other)
  Sender: FDA-Public Use
  Company Number: None

PATIENT
  Age: 48 Year
  Sex: Female
  Weight: 89.1 kg

DRUGS (1)
  1. REPATHA [Suspect]
     Active Substance: EVOLOCUMAB
     Indication: BLOOD CHOLESTEROL
     Dosage: ?          QUANTITY:140 INJECTION(S);OTHER FREQUENCY:TWICE A MONTH;?
     Route: 058
     Dates: start: 20170301, end: 20180801

REACTIONS (7)
  - Sinus disorder [None]
  - Arthralgia [None]
  - Fatigue [None]
  - Gastritis [None]
  - Diabetes mellitus [None]
  - Back pain [None]
  - Diarrhoea [None]

NARRATIVE: CASE EVENT DATE: 20170611
